FAERS Safety Report 25021439 (Version 1)
Quarter: 2025Q1

REPORT INFORMATION
  Report Type: Spontaneous
  Country: KW (occurrence: KW)
  Receive Date: 20250228
  Receipt Date: 20250228
  Transmission Date: 20250409
  Serious: Yes (Life-Threatening, Hospitalization, Other)
  Sender: Unknown Manufacturer
  Company Number: KW-862174955-ML2025-00952

PATIENT
  Age: 27 Year
  Sex: Female

DRUGS (2)
  1. VERAPAMIL [Suspect]
     Active Substance: VERAPAMIL HYDROCHLORIDE
     Indication: Product used for unknown indication
     Route: 048
  2. ESZOPICLONE [Concomitant]
     Active Substance: ESZOPICLONE
     Indication: Anxiety

REACTIONS (10)
  - Shock [Recovering/Resolving]
  - Arrhythmia [Recovering/Resolving]
  - Vasodilatation [Recovering/Resolving]
  - Lactic acidosis [Recovering/Resolving]
  - Acute pulmonary oedema [Recovering/Resolving]
  - Blood potassium increased [Unknown]
  - Atrioventricular block complete [Recovering/Resolving]
  - Bradycardia [Recovering/Resolving]
  - Cardiac arrest [Recovered/Resolved]
  - Intentional overdose [Unknown]
